FAERS Safety Report 6159068-7 (Version None)
Quarter: 2009Q2

REPORT INFORMATION
  Report Type: 
  Country: None (occurrence: None)
  Receive Date: 20090417
  Receipt Date: 20090407
  Transmission Date: 20091009
  Serious: Yes (Hospitalization)
  Sender: FDA-Public Use
  Company Number: FR-ELI_LILLY_AND_COMPANY-FR200904001897

PATIENT
  Age: 74 Year
  Sex: Female

DRUGS (5)
  1. FORTEO [Suspect]
     Indication: OSTEOPOROSIS
     Dosage: 20 UG, DAILY (1/D)
     Route: 065
     Dates: start: 20080409
  2. PERINDOPRIL ERBUMINE [Concomitant]
     Dosage: UNK, UNKNOWN
     Route: 065
  3. TAHOR [Concomitant]
     Dosage: UNK, UNKNOWN
     Route: 065
  4. CORTANCYL [Concomitant]
     Dosage: UNK, UNKNOWN
     Route: 065
  5. LEXOMIL [Concomitant]
     Dosage: UNK, UNKNOWN
     Route: 065

REACTIONS (1)
  - AORTIC STENOSIS [None]
